FAERS Safety Report 23855018 (Version 1)
Quarter: 2024Q2

REPORT INFORMATION
  Report Type: Spontaneous
  Country: US (occurrence: US)
  Receive Date: 20240514
  Receipt Date: 20240514
  Transmission Date: 20240716
  Serious: Yes (Life-Threatening, Hospitalization)
  Sender: FDA-Public Use
  Company Number: US-MYLANLABS-2024M1043644

PATIENT
  Age: 49 Year
  Sex: Male

DRUGS (5)
  1. AMIODARONE [Suspect]
     Active Substance: AMIODARONE
     Indication: Atrial fibrillation
     Dosage: AMIODARONE DRIP
     Route: 065
  2. IODINE [Concomitant]
     Active Substance: IODINE
     Indication: Thyrotoxic crisis
     Dosage: UNK
     Route: 065
  3. IODINE [Concomitant]
     Active Substance: IODINE
     Dosage: UNK, THERAPY RESTARTED
     Route: 065
  4. CHOLESTYRAMINE [Concomitant]
     Active Substance: CHOLESTYRAMINE
     Indication: Thyrotoxic crisis
     Dosage: UNK
     Route: 065
  5. CHOLESTYRAMINE [Concomitant]
     Active Substance: CHOLESTYRAMINE
     Dosage: UNK, THERAPY RESTARTED
     Route: 065

REACTIONS (1)
  - Drug ineffective [Unknown]
